FAERS Safety Report 6288842-1 (Version None)
Quarter: 2009Q3

REPORT INFORMATION
  Report Type: 
  Country: None (occurrence: None)
  Receive Date: 20090729
  Receipt Date: 20080317
  Transmission Date: 20100115
  Serious: Yes (Other)
  Sender: FDA-Public Use
  Company Number: US-ASTRAZENECA-2007UW23384

PATIENT
  Age: 15970 Day
  Sex: Female
  Weight: 52.6 kg

DRUGS (15)
  1. SEROQUEL [Suspect]
     Indication: BIPOLAR DISORDER
     Route: 048
     Dates: start: 20020101
  2. SEROQUEL [Suspect]
     Indication: DEPRESSION
     Route: 048
     Dates: start: 20020101
  3. SEROQUEL [Suspect]
     Route: 048
     Dates: start: 20040106
  4. SEROQUEL [Suspect]
     Route: 048
     Dates: start: 20040106
  5. LISINOPRIL [Concomitant]
     Dosage: 5-10 MG
  6. MORPHINE SULFATE [Concomitant]
  7. NORVASC [Concomitant]
  8. LIPITOR [Concomitant]
     Dosage: 5-20 MG
  9. LANTUS [Concomitant]
     Dosage: 27-100 UNITS/ML
  10. EFFEXOR [Concomitant]
     Dosage: 75-150 MG
  11. GABAPENTIN [Concomitant]
  12. HUMALOG [Concomitant]
     Dosage: 100 UNITS/ML
  13. AMBIEN [Concomitant]
  14. OXYCODONE HCL [Concomitant]
  15. DEPAKOTE [Concomitant]

REACTIONS (4)
  - DIABETES MELLITUS [None]
  - DIABETIC COMA [None]
  - DIABETIC NEUROPATHY [None]
  - KETOACIDOSIS [None]
